FAERS Safety Report 5700597-5 (Version None)
Quarter: 2008Q2

REPORT INFORMATION
  Report Type: 
  Country: None (occurrence: None)
  Receive Date: 20080409
  Receipt Date: 20080409
  Transmission Date: 20081010
  Serious: Yes (Other)
  Sender: FDA-Public Use
  Company Number: None

PATIENT
  Sex: Female
  Weight: 47.6277 kg

DRUGS (3)
  1. VYVANSE [Suspect]
     Indication: ATTENTION DEFICIT/HYPERACTIVITY DISORDER
     Dosage: 30 MG Q AM P.O.
     Route: 048
     Dates: start: 20080211, end: 20080310
  2. PROZAC [Suspect]
     Indication: ANXIETY
     Dosage: 5MG Q AM P.O.
     Route: 048
     Dates: start: 20071218, end: 20080310
  3. PROZAC [Suspect]
     Indication: DEPRESSION
     Dosage: 5MG Q AM P.O.
     Route: 048
     Dates: start: 20071218, end: 20080310

REACTIONS (2)
  - HALLUCINATION, AUDITORY [None]
  - SUICIDAL IDEATION [None]
